FAERS Safety Report 11359189 (Version 1)
Quarter: 2015Q3

REPORT INFORMATION
  Report Type: Spontaneous
  Country: US (occurrence: US)
  Receive Date: 20150807
  Receipt Date: 20150807
  Transmission Date: 20151125
  Serious: Yes (Hospitalization, Other)
  Sender: FDA-Public Use
  Company Number: US-PFIZER INC-2015253319

PATIENT
  Age: 54 Year
  Sex: Female

DRUGS (2)
  1. PAMELOR [Concomitant]
     Active Substance: NORTRIPTYLINE HYDROCHLORIDE
     Indication: SCHIZOPHRENIA
     Dosage: 75 MG, DAILY
     Dates: end: 1983
  2. THIOTHIXENE HCL [Suspect]
     Active Substance: THIOTHIXENE HYDROCHLORIDE
     Indication: SCHIZOPHRENIA
     Dosage: 20 MG, DAILY
     Dates: end: 1983

REACTIONS (2)
  - Hyperprolactinaemia [Recovering/Resolving]
  - Endometrial cancer [Recovered/Resolved]
